FAERS Safety Report 14485388 (Version 2)
Quarter: 2018Q3

REPORT INFORMATION
  Report Type: Spontaneous
  Country: RU (occurrence: RU)
  Receive Date: 20180205
  Receipt Date: 20180705
  Transmission Date: 20181010
  Serious: Yes (Hospitalization, Other)
  Sender: FDA-Public Use
  Company Number: RU-ASTRAZENECA-2018SE13915

PATIENT
  Age: 47 Year
  Sex: Female
  Weight: 98 kg

DRUGS (10)
  1. AMLODIPINE [Concomitant]
     Active Substance: AMLODIPINE BESYLATE
     Dates: start: 20171127
  2. PRESTARIUM [Concomitant]
     Active Substance: PERINDOPRIL
  3. GALVUS [Concomitant]
     Active Substance: VILDAGLIPTIN
  4. CARDIOMAGNYL [Concomitant]
     Active Substance: ASPIRIN\MAGNESIUM HYDROXIDE
  5. NEXIUM [Concomitant]
     Active Substance: ESOMEPRAZOLE MAGNESIUM
  6. BISOPROLOL [Concomitant]
     Active Substance: BISOPROLOL
     Dates: start: 20171127
  7. BRILINTA [Suspect]
     Active Substance: TICAGRELOR
     Indication: MYOCARDIAL INFARCTION
     Route: 048
     Dates: start: 20171205
  8. CRESTOR [Concomitant]
     Active Substance: ROSUVASTATIN CALCIUM
  9. BETALOC [Concomitant]
     Active Substance: METOPROLOL TARTRATE
  10. DIABETON [Concomitant]
     Active Substance: GLICLAZIDE

REACTIONS (4)
  - Intentional product misuse [Recovered/Resolved]
  - Blood pressure increased [Unknown]
  - Angina pectoris [Recovered/Resolved]
  - Left ventricular enlargement [Unknown]

NARRATIVE: CASE EVENT DATE: 201712
